FAERS Safety Report 7934099-2 (Version None)
Quarter: 2011Q4

REPORT INFORMATION
  Report Type: 
  Country: None (occurrence: None)
  Receive Date: 20111122
  Receipt Date: 20111109
  Transmission Date: 20120403
  Serious: Yes (Death, Life-Threatening, Other)
  Sender: FDA-Public Use
  Company Number: US-MYLANLABS-2011S1023527

PATIENT
  Age: 39 Year
  Sex: Male

DRUGS (1)
  1. METFORMIN HCL [Suspect]
     Indication: SUICIDE ATTEMPT
     Dosage: UP TO 90G INGESTED

REACTIONS (4)
  - LACTIC ACIDOSIS [None]
  - HAEMODYNAMIC INSTABILITY [None]
  - INTENTIONAL OVERDOSE [None]
  - COMPLETED SUICIDE [None]
